FAERS Safety Report 20580222 (Version 1)
Quarter: 2022Q1

REPORT INFORMATION
  Report Type: Spontaneous
  Country: US (occurrence: US)
  Receive Date: 20220310
  Receipt Date: 20220310
  Transmission Date: 20220424
  Serious: No
  Sender: FDA-Public Use
  Company Number: US-HORIZON THERAPEUTICS-HZN-2021-007628

PATIENT
  Sex: Female

DRUGS (2)
  1. PENNSAID [Suspect]
     Active Substance: DICLOFENAC SODIUM
     Indication: Pain
     Dosage: 1 DOSAGE FORM, BID
     Route: 065
  2. DICLOFENAC [Concomitant]
     Active Substance: DICLOFENAC
     Indication: Pain
     Dosage: UNK
     Route: 065

REACTIONS (2)
  - Product use in unapproved indication [Unknown]
  - Inability to afford medication [Unknown]
